FAERS Safety Report 21566827 (Version 1)
Quarter: 2022Q4

REPORT INFORMATION
  Report Type: Spontaneous
  Country: US (occurrence: None)
  Receive Date: 20221107
  Receipt Date: 20221107
  Transmission Date: 20230113
  Serious: Yes (Life-Threatening, Hospitalization)
  Sender: FDA-Public Use
  Company Number: None

PATIENT
  Age: 72 Year
  Sex: Female
  Weight: 47.7 kg

DRUGS (1)
  1. RECLAST [Suspect]
     Active Substance: ZOLEDRONIC ACID
     Indication: Osteoporosis
     Dosage: FREQUENCY : EVERY YEAR;?
     Route: 042
     Dates: start: 20221005

REACTIONS (6)
  - Oedema peripheral [None]
  - Fatigue [None]
  - Asthenia [None]
  - Arthralgia [None]
  - Cardiac failure [None]
  - Nodule [None]

NARRATIVE: CASE EVENT DATE: 20221009
